FAERS Safety Report 11951577 (Version 2)
Quarter: 2016Q1

REPORT INFORMATION
  Report Type: Spontaneous
  Country: US (occurrence: US)
  Receive Date: 20160125
  Receipt Date: 20160204
  Transmission Date: 20160526
  Serious: No
  Sender: FDA-Public Use
  Company Number: US-GLAXOSMITHKLINE-US2016GSK007619

PATIENT
  Sex: Female

DRUGS (1)
  1. TANZEUM [Suspect]
     Active Substance: ALBIGLUTIDE
     Indication: TYPE 2 DIABETES MELLITUS
     Dosage: 30 MG, WE
     Route: 042
     Dates: start: 201512

REACTIONS (5)
  - Device use error [Recovered/Resolved]
  - Underdose [Unknown]
  - Injection site rash [Unknown]
  - Injection site erythema [Unknown]
  - Device leakage [Unknown]

NARRATIVE: CASE EVENT DATE: 201601
